FAERS Safety Report 17587157 (Version 5)
Quarter: 2020Q2

REPORT INFORMATION
  Report Type: Spontaneous
  Country: US (occurrence: US)
  Receive Date: 20200326
  Receipt Date: 20200625
  Transmission Date: 20200713
  Serious: Yes (Other)
  Sender: FDA-Public Use
  Company Number: US-BAYER-2020-048158

PATIENT
  Age: 63 Year
  Sex: Male

DRUGS (2)
  1. KOGENATE FS [Suspect]
     Active Substance: ANTIHEMOPHILIC FACTOR, HUMAN RECOMBINANT
     Dosage: 2628 IU
     Route: 042
  2. KOGENATE FS [Suspect]
     Active Substance: ANTIHEMOPHILIC FACTOR, HUMAN RECOMBINANT
     Dosage: 5256 IU
     Route: 042

REACTIONS (4)
  - Kidney infection [Recovered/Resolved]
  - Cystitis [Recovered/Resolved]
  - Post procedural complication [Recovered/Resolved]
  - Transurethral prostatectomy [Recovered/Resolved]

NARRATIVE: CASE EVENT DATE: 20200307
